FAERS Safety Report 18035117 (Version 1)
Quarter: 2020Q3

REPORT INFORMATION
  Report Type: Spontaneous
  Country: GB (occurrence: GB)
  Receive Date: 20200717
  Receipt Date: 20200717
  Transmission Date: 20201103
  Serious: Yes (Death)
  Sender: FDA-Public Use
  Company Number: GB-TEVA-2020-GB-1800791

PATIENT
  Age: 77 Year
  Sex: Female
  Weight: 58 kg

DRUGS (7)
  1. MIRTAZAPINE HYDROCHLORIDE [Suspect]
     Active Substance: MIRTAZAPINE
     Dosage: 30 MILLIGRAM DAILY; AT NIGHT.
     Route: 048
     Dates: start: 20200610, end: 20200615
  2. FLUCLOXACILLIN SODIUM [Concomitant]
     Active Substance: FLUCLOXACILLIN SODIUM
  3. LAXIDO [Concomitant]
     Active Substance: POLYETHYLENE GLYCOL 3350\POTASSIUM CHLORIDE\SODIUM BICARBONATE\SODIUM CHLORIDE
  4. LORATADINE. [Concomitant]
     Active Substance: LORATADINE
  5. CHLORAMPHENICOL [Concomitant]
     Active Substance: CHLORAMPHENICOL
  6. MIRTAZAPINE HYDROCHLORIDE [Suspect]
     Active Substance: MIRTAZAPINE
     Dosage: 15 MILLIGRAM DAILY; AT NIGHT
     Route: 048
     Dates: start: 20200528, end: 20200609
  7. RISPERIDONE. [Concomitant]
     Active Substance: RISPERIDONE
     Dosage: 500 MICROGRAM DAILY; IN THE EVENING.
     Dates: start: 20200521

REACTIONS (1)
  - Completed suicide [Fatal]
